FAERS Safety Report 4534168-3 (Version None)
Quarter: 2004Q4

REPORT INFORMATION
  Report Type: 
  Country: None (occurrence: None)
  Receive Date: 20041214
  Receipt Date: 20040901
  Transmission Date: 20050328
  Serious: No
  Sender: FDA-Public Use
  Company Number: 2004233287US

PATIENT
  Age: 58 Year
  Sex: Male
  Weight: 77.1 kg

DRUGS (1)
  1. BEXTRA [Suspect]
     Indication: PROSTATIC DISORDER
     Dosage: 10 MG, QD
     Dates: start: 20040830, end: 20040830

REACTIONS (2)
  - NAUSEA [None]
  - UNEVALUABLE EVENT [None]
